FAERS Safety Report 8154133 (Version 4)
Quarter: 2013Q2

REPORT INFORMATION
  Report Type: Report from Study
  Country: IT (occurrence: IT)
  Receive Date: 20110923
  Receipt Date: 20130612
  Transmission Date: 20140414
  Serious: Yes (Hospitalization)
  Sender: FDA-Public Use
  Company Number: IT-NOVOPROD-335222

PATIENT
  Age: 16 Month
  Sex: Male
  Weight: 11 kg

DRUGS (2)
  1. NOVOSEVEN RT [Suspect]
     Indication: HAEMOPHILIA A WITH ANTI FACTOR VIII
     Dosage: 1 ML, QD
  2. NOVOSEVEN (RT) [Suspect]
     Indication: PROPHYLAXIS
     Dosage: 1 ML, QD

REACTIONS (2)
  - Medication error [Recovered/Resolved]
  - Bacterial infection [Recovered/Resolved]
